FAERS Safety Report 9966030 (Version 1)
Quarter: 2014Q1

REPORT INFORMATION
  Report Type: Report from Study
  Country: US (occurrence: US)
  Receive Date: 20140305
  Receipt Date: 20140305
  Transmission Date: 20141002
  Serious: No
  Sender: FDA-Public Use
  Company Number: US-ABBVIE-13P-163-1122116-00

PATIENT
  Age: 40 Year
  Sex: Female

DRUGS (6)
  1. HUMIRA [Suspect]
     Indication: COLITIS ULCERATIVE
     Dates: start: 20130413
  2. LIALDA [Concomitant]
     Indication: COLITIS ULCERATIVE
     Dosage: 4.2GM DAILY
  3. ACEBUTALOL [Concomitant]
     Indication: HYPERTENSION
  4. FLOVENT [Concomitant]
     Indication: PRODUCT USED FOR UNKNOWN INDICATION
     Dosage: 110MCQ/2PUFFS
  5. OTC THEANINE [Concomitant]
     Indication: ANXIETY
  6. DEXAMETHASONE [Concomitant]
     Indication: PRODUCT USED FOR UNKNOWN INDICATION

REACTIONS (4)
  - Injection site bruising [Recovering/Resolving]
  - Injection site pruritus [Recovering/Resolving]
  - Injection site erythema [Recovering/Resolving]
  - Injection site bruising [Recovering/Resolving]
